FAERS Safety Report 5121703-X (Version None)
Quarter: 2006Q4

REPORT INFORMATION
  Report Type: 
  Country: None (occurrence: None)
  Receive Date: 20061006
  Receipt Date: 20061003
  Transmission Date: 20070319
  Serious: Yes (Hospitalization)
  Sender: FDA-Public Use
  Company Number: 464659

PATIENT
  Age: 75 Year
  Sex: Male

DRUGS (12)
  1. CARVEDILOL [Suspect]
     Indication: CARDIAC FAILURE CHRONIC
     Dosage: 2.5MG PER DAY
     Route: 048
     Dates: start: 20041022, end: 20050610
  2. PANTOSIN [Concomitant]
  3. NITROGLYCERIN [Concomitant]
  4. MEXITIL [Concomitant]
  5. ASPIRIN [Concomitant]
  6. LASIX [Concomitant]
  7. HERBESSER [Concomitant]
  8. ALLOPURINOL [Concomitant]
  9. FRANDOL [Concomitant]
  10. FAMOTIDINE [Concomitant]
  11. ACECOL [Concomitant]
  12. URSO [Concomitant]

REACTIONS (3)
  - CARDIAC FAILURE [None]
  - DYSPNOEA [None]
  - PLEURAL EFFUSION [None]
